FAERS Safety Report 7481317-3 (Version None)
Quarter: 2011Q2

REPORT INFORMATION
  Report Type: 
  Country: None (occurrence: None)
  Receive Date: 20110512
  Receipt Date: 20110512
  Transmission Date: 20111010
  Serious: Yes (Hospitalization, Other)
  Sender: FDA-Public Use
  Company Number: None

PATIENT
  Age: 67 Year
  Sex: Male
  Weight: 72 kg

DRUGS (6)
  1. ADVAIR DISKUS 100/50 [Concomitant]
  2. VORICONAZOLE [Concomitant]
  3. CIPROFLOXACIN [Suspect]
     Dosage: 500MG PO Q12
     Route: 048
     Dates: start: 20101108, end: 20101122
  4. PREDNISONE [Concomitant]
  5. MEROPENEM [Concomitant]
  6. FLUTICASONE NASAL [Concomitant]

REACTIONS (2)
  - ASPARTATE AMINOTRANSFERASE INCREASED [None]
  - ALANINE AMINOTRANSFERASE INCREASED [None]
